FAERS Safety Report 18506204 (Version 1)
Quarter: 2020Q4

REPORT INFORMATION
  Report Type: Spontaneous
  Country: GB (occurrence: GB)
  Receive Date: 20201116
  Receipt Date: 20201116
  Transmission Date: 20210114
  Serious: Yes (Other)
  Sender: FDA-Public Use
  Company Number: GB-JNJFOC-20201118950

PATIENT
  Age: 37 Year
  Sex: Male
  Weight: 82.55 kg

DRUGS (5)
  1. TOPAMAX [Suspect]
     Active Substance: TOPIRAMATE
     Indication: MIGRAINE PROPHYLAXIS
     Route: 048
     Dates: start: 20201001, end: 20201026
  2. PREGABALIN. [Concomitant]
     Active Substance: PREGABALIN
  3. OMEPRAZOLE. [Concomitant]
     Active Substance: OMEPRAZOLE
  4. CETIRIZINE [Concomitant]
     Active Substance: CETIRIZINE HYDROCHLORIDE
  5. CITALOPRAM [Concomitant]
     Active Substance: CITALOPRAM HYDROBROMIDE

REACTIONS (13)
  - Asthenia [Unknown]
  - Libido decreased [Unknown]
  - Visual impairment [Unknown]
  - Hypoacusis [Unknown]
  - Anxiety [Unknown]
  - Oropharyngeal pain [Unknown]
  - Panic attack [Unknown]
  - Tremor [Unknown]
  - Dizziness [Unknown]
  - Influenza [Unknown]
  - Paraesthesia [Unknown]
  - Fatigue [Unknown]
  - Depression [Unknown]

NARRATIVE: CASE EVENT DATE: 20201001
